FAERS Safety Report 7795902-2 (Version None)
Quarter: 2011Q4

REPORT INFORMATION
  Report Type: 
  Country: None (occurrence: None)
  Receive Date: 20111004
  Receipt Date: 20110923
  Transmission Date: 20120403
  Serious: Yes (Other)
  Sender: FDA-Public Use
  Company Number: FR-PFIZER INC-2011036275

PATIENT
  Age: 54 Year
  Sex: Female

DRUGS (1)
  1. ATARAX [Suspect]
     Indication: INSOMNIA
     Dosage: 25 MG, 1X/DAY
     Route: 048
     Dates: start: 20101101

REACTIONS (1)
  - OCULAR HYPERTENSION [None]
